FAERS Safety Report 20194815 (Version 1)
Quarter: 2021Q4

REPORT INFORMATION
  Report Type: Spontaneous
  Country: IT (occurrence: IT)
  Receive Date: 20211216
  Receipt Date: 20211216
  Transmission Date: 20220303
  Serious: Yes (Hospitalization)
  Sender: FDA-Public Use
  Company Number: IT-STADA-192139

PATIENT
  Age: 65 Year
  Sex: Female

DRUGS (7)
  1. CASPOFUNGIN [Suspect]
     Active Substance: CASPOFUNGIN
     Indication: Endocarditis candida
     Dosage: 70 MILLIGRAM(ON THE FIRST DAY, THEREAFTER 50MG PER DAY)
     Route: 065
  2. CASPOFUNGIN [Suspect]
     Active Substance: CASPOFUNGIN
     Indication: Antifungal treatment
     Dosage: 50 MILLIGRAM, QD
     Route: 065
  3. VORICONAZOLE [Suspect]
     Active Substance: VORICONAZOLE
     Indication: Endocarditis candida
     Dosage: 200 MILLIGRAM, QD (200MG BID)
     Route: 048
  4. VORICONAZOLE [Suspect]
     Active Substance: VORICONAZOLE
     Indication: Antifungal treatment
  5. ANIDULAFUNGIN [Suspect]
     Active Substance: ANIDULAFUNGIN
     Indication: Endocarditis candida
     Dosage: 200 MILLIGRAM, QD(DOUBLE DOSAGE)
     Route: 065
  6. ANIDULAFUNGIN [Suspect]
     Active Substance: ANIDULAFUNGIN
     Indication: Antifungal treatment
  7. AMPHOTERICIN B [Concomitant]
     Active Substance: AMPHOTERICIN B
     Indication: Endocarditis candida
     Dosage: 3 MILLIGRAM/KILOGRAM, QD
     Route: 050

REACTIONS (2)
  - Pathogen resistance [Unknown]
  - Drug resistance [Unknown]
